FAERS Safety Report 10784410 (Version 1)
Quarter: 2015Q1

REPORT INFORMATION
  Report Type: Spontaneous
  Country: US (occurrence: None)
  Receive Date: 20150209
  Receipt Date: 20150209
  Transmission Date: 20150721
  Serious: No
  Sender: FDA-Public Use
  Company Number: None

PATIENT
  Age: 49 Year
  Sex: Female
  Weight: 61.24 kg

DRUGS (6)
  1. SIMVASTATIN. [Suspect]
     Active Substance: SIMVASTATIN
     Indication: BLOOD CHOLESTEROL INCREASED
     Route: 048
  2. SIMVASTATIN. [Suspect]
     Active Substance: SIMVASTATIN
     Indication: BLOOD TRIGLYCERIDES INCREASED
     Route: 048
  3. ROSUVASTATIN [Suspect]
     Active Substance: ROSUVASTATIN
     Indication: BLOOD CHOLESTEROL INCREASED
     Route: 048
  4. ROSUVASTATIN [Suspect]
     Active Substance: ROSUVASTATIN
     Indication: BLOOD TRIGLYCERIDES INCREASED
     Route: 048
  5. ATENOLOL. [Concomitant]
     Active Substance: ATENOLOL
  6. ASPIRIN. [Concomitant]
     Active Substance: ASPIRIN

REACTIONS (12)
  - Pain [None]
  - Myalgia [None]
  - Feeling abnormal [None]
  - Dyskinesia [None]
  - Cough [None]
  - Cognitive disorder [None]
  - Muscle twitching [None]
  - Mood altered [None]
  - Asthenia [None]
  - Amnesia [None]
  - Disturbance in attention [None]
  - Thinking abnormal [None]

NARRATIVE: CASE EVENT DATE: 20140501
